FAERS Safety Report 10808866 (Version 1)
Quarter: 2015Q1

REPORT INFORMATION
  Report Type: Report from Study
  Country: US (occurrence: US)
  Receive Date: 20150217
  Receipt Date: 20150217
  Transmission Date: 20150721
  Serious: No
  Sender: FDA-Public Use
  Company Number: US-ABBVIE-14K-163-1217825-00

PATIENT
  Age: 69 Year
  Sex: Female

DRUGS (18)
  1. LOTAMIN [Concomitant]
     Indication: ABNORMAL SENSATION IN EYE
     Dosage: 0.5% ONE DROP BOTH EYES
  2. FERROUS SULFATE [Concomitant]
     Active Substance: FERROUS SULFATE\FERROUS SULFATE, DRIED
     Indication: MINERAL SUPPLEMENTATION
     Dates: end: 201403
  3. LISINOPRIL. [Concomitant]
     Active Substance: LISINOPRIL
     Indication: CARDIAC DISORDER
  4. SOLIGEN [Concomitant]
     Indication: EYE DISORDER
  5. FOLIC ACID. [Concomitant]
     Active Substance: FOLIC ACID
     Indication: VITAMIN SUPPLEMENTATION
  6. PROTONIX [Concomitant]
     Active Substance: PANTOPRAZOLE SODIUM
     Indication: PAIN
  7. PROTONIX [Concomitant]
     Active Substance: PANTOPRAZOLE SODIUM
     Indication: PRODUCT USED FOR UNKNOWN INDICATION
  8. SIMVASTATIN. [Concomitant]
     Active Substance: SIMVASTATIN
     Indication: BLOOD CHOLESTEROL
  9. RESTASIS [Concomitant]
     Active Substance: CYCLOSPORINE
     Indication: DRY EYE
     Dosage: BOTH EYES
  10. VOLTAREN [Concomitant]
     Active Substance: DICLOFENAC SODIUM
     Indication: PAIN
     Dosage: 1% CRM, UP TO TWO TIMES DAILY
  11. PROTONIX [Concomitant]
     Active Substance: PANTOPRAZOLE SODIUM
     Indication: INFLAMMATION
  12. MIRO OINTMENT EYE LUBRICANT [Concomitant]
     Indication: DRY EYE
     Dosage: FOR BOTH EYES AT NIGHT
  13. METOPROLOL XL SANDOZ [Concomitant]
     Indication: CARDIAC DISORDER
  14. HUMIRA [Suspect]
     Active Substance: ADALIMUMAB
     Indication: RHEUMATOID ARTHRITIS
     Dates: start: 20140122
  15. FLEXERIL [Concomitant]
     Active Substance: CYCLOBENZAPRINE HYDROCHLORIDE
     Indication: MUSCLE SPASMS
     Dosage: UP TO THREE TIMES DAILY
  16. RELAFEN [Concomitant]
     Active Substance: NABUMETONE
     Indication: PAIN
  17. OGEN [Concomitant]
     Active Substance: ESTROPIPATE
     Indication: HORMONE REPLACEMENT THERAPY
  18. RELAFEN [Concomitant]
     Active Substance: NABUMETONE
     Indication: INFLAMMATION

REACTIONS (8)
  - Pain in extremity [Unknown]
  - Injection site erythema [Recovering/Resolving]
  - Injection site bruising [Recovered/Resolved]
  - Muscle spasms [Unknown]
  - Injection site erythema [Recovered/Resolved]
  - Rhinorrhoea [Recovered/Resolved]
  - Injection site erythema [Recovered/Resolved]
  - Injection site erythema [Not Recovered/Not Resolved]

NARRATIVE: CASE EVENT DATE: 2014
